FAERS Safety Report 24839339 (Version 1)
Quarter: 2025Q1

REPORT INFORMATION
  Report Type: Spontaneous
  Country: CA (occurrence: CA)
  Receive Date: 20250114
  Receipt Date: 20250114
  Transmission Date: 20250409
  Serious: No
  Sender: ALKEM
  Company Number: CA-ALKEM LABORATORIES LIMITED-CA-ALKEM-2024-23326

PATIENT
  Age: 76 Year
  Sex: Male

DRUGS (1)
  1. CAPECITABINE [Suspect]
     Active Substance: CAPECITABINE
     Indication: Lip and/or oral cavity cancer
     Dosage: 1500 MILLIGRAM, BID 1 WEEK OFF, FOR A TOTAL OF 2 CYCLES
     Route: 065

REACTIONS (1)
  - Therapy partial responder [Unknown]
